FAERS Safety Report 4553593-8 (Version None)
Quarter: 2004Q4

REPORT INFORMATION
  Report Type: 
  Country: None (occurrence: None)
  Receive Date: 20041227
  Receipt Date: 20041112
  Transmission Date: 20050328
  Serious: No
  Sender: FDA-Public Use
  Company Number: 04P-163-0280482-00

PATIENT
  Age: 38 Year
  Sex: Male
  Weight: 118 kg

DRUGS (15)
  1. HUMIRA [Suspect]
     Indication: RHEUMATOID ARTHRITIS
     Dosage: 40 MG, 1 IN 1 WK, SUBCUTANEOUS
     Route: 058
     Dates: start: 20040901
  2. METHADONE HCL [Concomitant]
  3. CARISOPRODOL [Concomitant]
  4. ALBUTEROL [Concomitant]
  5. COMBIVENT [Concomitant]
  6. SINGULAIR [Concomitant]
  7. SERETIDE MITE [Concomitant]
  8. CO-DIOVAN [Concomitant]
  9. DILTIAZEM HYDROCHLORIDE [Concomitant]
  10. FENOFIBRATE [Concomitant]
  11. RABEPRAZOLE SODIUM [Concomitant]
  12. METOCLOPRAMIDE [Concomitant]
  13. MAGNESIUM [Concomitant]
  14. POTASSIUM [Concomitant]
  15. FUROSEMIDE [Concomitant]

REACTIONS (1)
  - AMNESIA [None]
